FAERS Safety Report 9291141 (Version 1)
Quarter: 2012Q4

REPORT INFORMATION
  Report Type: Spontaneous
  Country: US (occurrence: None)
  Receive Date: 20121009
  Receipt Date: 20121009
  Transmission Date: 20130627
  Serious: Yes (Other)
  Sender: FDA-Public Use
  Company Number: 2011MA002471

PATIENT
  Sex: Male

DRUGS (17)
  1. METOCLOPRAMIDE TABLETS USP, 10 MG (PUREPAC) [Suspect]
     Dosage: ac + hs
     Route: 048
     Dates: start: 20040905, end: 20080119
  2. NIFEDIAC [Concomitant]
  3. LYRICA [Concomitant]
  4. NEXIUM [Concomitant]
  5. LEXAPRO [Concomitant]
  6. ZOLPIDEM [Concomitant]
  7. DIPHENHYDRAMINE [Concomitant]
  8. ZYPREXA [Concomitant]
  9. HYDROCODONE W/APAP [Concomitant]
  10. VIAGRA [Concomitant]
  11. KADIAN [Concomitant]
  12. GABAPENTIN [Concomitant]
  13. ALPRAZOLAM [Concomitant]
  14. TRAMADOL [Concomitant]
  15. GEODON [Concomitant]
  16. AMOXICILLIN [Concomitant]
  17. FENTANYL [Concomitant]

REACTIONS (5)
  - Emotional disorder [None]
  - Economic problem [None]
  - Extrapyramidal disorder [None]
  - Extrapyramidal disorder [None]
  - Tardive dyskinesia [None]
